FAERS Safety Report 5078437-X (Version None)
Quarter: 2006Q3

REPORT INFORMATION
  Report Type: 
  Country: None (occurrence: None)
  Receive Date: 20060811
  Receipt Date: 20060102
  Transmission Date: 20061208
  Serious: Yes (Death)
  Sender: FDA-Public Use
  Company Number: FR-BRISTOL-MYERS SQUIBB COMPANY-13235114

PATIENT
  Age: 27 Year
  Sex: Female

DRUGS (2)
  1. ABILIFY [Suspect]
     Indication: SCHIZOAFFECTIVE DISORDER
     Dosage: ABILIFY: TABLET (DOSE UNKNOWN) TAKEN FOR DURATION OF 3 TO 4 MONTHS; PT WAS NOT COMPLIANT TO THIS RX.
     Route: 048
     Dates: start: 20050726, end: 20051227
  2. TERALITHE [Suspect]
     Indication: SCHIZOAFFECTIVE DISORDER
     Route: 048
     Dates: start: 20041015, end: 20051227

REACTIONS (2)
  - COMPLETED SUICIDE [None]
  - TREATMENT NONCOMPLIANCE [None]
